FAERS Safety Report 8796362 (Version 5)
Quarter: 2013Q1

REPORT INFORMATION
  Report Type: Spontaneous
  Country: US (occurrence: US)
  Receive Date: 20120919
  Receipt Date: 20130211
  Transmission Date: 20140127
  Serious: Yes (Hospitalization, Other)
  Sender: FDA-Public Use
  Company Number: US-009507513-1201USA03051

PATIENT
  Sex: Female

DRUGS (3)
  1. FOSAMAX [Suspect]
     Indication: OSTEOPENIA
     Dosage: 10 MG, UNK
     Route: 048
     Dates: start: 199905, end: 2002
  2. FOSAMAX [Suspect]
     Dosage: 70 MG, UNK
     Route: 048
     Dates: start: 2002, end: 200901
  3. ALENDRONATE SODIUM [Suspect]
     Dosage: 70 MG, UNK

REACTIONS (17)
  - Femur fracture [Recovering/Resolving]
  - Fall [Unknown]
  - Intramedullary rod insertion [Unknown]
  - Foot fracture [Unknown]
  - Endodontic procedure [Unknown]
  - Subdural haematoma [Unknown]
  - Osteoporosis [Unknown]
  - Anticoagulation drug level above therapeutic [Unknown]
  - Tooth repair [Unknown]
  - Sensitivity of teeth [Unknown]
  - Back pain [Unknown]
  - CREST syndrome [Unknown]
  - Essential hypertension [Unknown]
  - Asthenia [Unknown]
  - Atelectasis [Recovered/Resolved]
  - Postoperative fever [Recovered/Resolved]
  - Arthralgia [Recovered/Resolved]
